FAERS Safety Report 9716984 (Version 1)
Quarter: 2013Q4

REPORT INFORMATION
  Report Type: Spontaneous
  Country: US (occurrence: US)
  Receive Date: 20131127
  Receipt Date: 20131127
  Transmission Date: 20140711
  Serious: Yes (Other)
  Sender: FDA-Public Use
  Company Number: US-GILEAD-2009-0020224

PATIENT
  Age: 68 Year
  Sex: Female

DRUGS (7)
  1. LETAIRIS [Suspect]
     Indication: PULMONARY ARTERIAL HYPERTENSION
     Route: 048
     Dates: start: 20081215, end: 20090206
  2. LORTAB [Concomitant]
  3. SOMA [Concomitant]
  4. ATENOLOL [Concomitant]
  5. DIGOXIN [Concomitant]
  6. RAMIPRIL [Concomitant]
  7. REVATIO [Concomitant]

REACTIONS (8)
  - Oropharyngeal pain [Unknown]
  - Dyspnoea [Unknown]
  - Nasal congestion [Unknown]
  - Palpitations [Unknown]
  - Hot flush [Unknown]
  - Oedema [Unknown]
  - Headache [Unknown]
  - Constipation [Unknown]
